FAERS Safety Report 15272819 (Version 1)
Quarter: 2018Q3

REPORT INFORMATION
  Report Type: Report from Study
  Country: US (occurrence: US)
  Receive Date: 20180813
  Receipt Date: 20180813
  Transmission Date: 20181010
  Serious: No
  Sender: FDA-Public Use
  Company Number: US-INCYTE CORPORATION-2018IN006867

PATIENT

DRUGS (2)
  1. JAKAFI [Suspect]
     Active Substance: RUXOLITINIB
     Indication: MYELOFIBROSIS
     Dosage: 25 MG; BID
     Route: 048
     Dates: start: 20180401
  2. JAKAFI [Suspect]
     Active Substance: RUXOLITINIB
     Dosage: 25MG (2 TABS) AM AND 25MG 1 PM
     Route: 048

REACTIONS (1)
  - Drug dose omission [Unknown]
